FAERS Safety Report 8565481-0 (Version None)
Quarter: 2012Q3

REPORT INFORMATION
  Report Type: 
  Country: None (occurrence: None)
  Receive Date: 20120803
  Receipt Date: 20120730
  Transmission Date: 20120928
  Serious: Yes (Hospitalization, Other)
  Sender: FDA-Public Use
  Company Number: CA-AMGEN-CANSP2012042965

PATIENT
  Age: 55 Year
  Sex: Female

DRUGS (1)
  1. ENBREL [Suspect]
     Indication: RHEUMATOID ARTHRITIS
     Dosage: 50 MG, QWK
     Dates: start: 20110808, end: 20120709

REACTIONS (7)
  - CEREBROVASCULAR ACCIDENT [None]
  - STAPHYLOCOCCAL INFECTION [None]
  - SPLENIC INFARCTION [None]
  - ASPIRATION PLEURAL CAVITY [None]
  - RHEUMATOID LUNG [None]
  - SEPTIC SHOCK [None]
  - POSTOPERATIVE WOUND INFECTION [None]
